FAERS Safety Report 12580507 (Version 1)
Quarter: 2016Q3

REPORT INFORMATION
  Report Type: Spontaneous
  Country: US (occurrence: US)
  Receive Date: 20160721
  Receipt Date: 20160721
  Transmission Date: 20161109
  Serious: No
  Sender: FDA-Public Use
  Company Number: US-SEPTODONT-201603334

PATIENT
  Age: 48 Year
  Sex: Female

DRUGS (2)
  1. LIDOCAINE OINTMENT USP, 5% [Suspect]
     Active Substance: LIDOCAINE
     Indication: LOCAL ANAESTHESIA
     Dosage: TO BE USED 3X/DAY
     Route: 061
  2. LIDODERM [Suspect]
     Active Substance: LIDOCAINE
     Dosage: 12 HOURS ON AND 12 HOURS OFF

REACTIONS (2)
  - Off label use [Unknown]
  - Drug ineffective [Unknown]
